FAERS Safety Report 11866310 (Version 1)
Quarter: 2015Q4

REPORT INFORMATION
  Report Type: Spontaneous
  Country: US (occurrence: US)
  Receive Date: 20151223
  Receipt Date: 20151223
  Transmission Date: 20160305
  Serious: No
  Sender: FDA-Public Use
  Company Number: US-009507513-1512USA004069

PATIENT
  Age: 43 Year
  Sex: Female
  Weight: 105.67 kg

DRUGS (2)
  1. NUVARING [Suspect]
     Active Substance: ETHINYL ESTRADIOL\ETONOGESTREL
     Indication: MENSTRUAL CYCLE MANAGEMENT
     Dosage: 1 RING/ 3 WEEKS IN/ 1 WEEK OUT
     Route: 067
     Dates: start: 2008, end: 20151108
  2. NUVARING [Suspect]
     Active Substance: ETHINYL ESTRADIOL\ETONOGESTREL
     Dosage: 1 RING/ 3 WEEKS IN/ 1 WEEK OUT
     Route: 067
     Dates: start: 20151115

REACTIONS (3)
  - Haemorrhage [Not Recovered/Not Resolved]
  - Product use issue [Unknown]
  - Hypomenorrhoea [Not Recovered/Not Resolved]

NARRATIVE: CASE EVENT DATE: 201511
